FAERS Safety Report 6221572-0 (Version None)
Quarter: 2009Q2

REPORT INFORMATION
  Report Type: 
  Country: None (occurrence: None)
  Receive Date: 20090610
  Receipt Date: 20080326
  Transmission Date: 20091009
  Serious: Yes (Other)
  Sender: FDA-Public Use
  Company Number: US-JNJFOC-20071205721

PATIENT
  Sex: Female
  Weight: 79.38 kg

DRUGS (5)
  1. TOPAMAX [Suspect]
  2. TOPAMAX [Suspect]
  3. TOPAMAX [Suspect]
     Indication: MIGRAINE PROPHYLAXIS
  4. ZYRTEC [Concomitant]
     Indication: MULTIPLE ALLERGIES
     Route: 048
  5. MAXALT-MLT [Concomitant]
     Indication: MIGRAINE PROPHYLAXIS

REACTIONS (2)
  - ANGLE CLOSURE GLAUCOMA [None]
  - HEADACHE [None]
